FAERS Safety Report 4310860-0 (Version None)
Quarter: 2004Q1

REPORT INFORMATION
  Report Type: 
  Country: None (occurrence: None)
  Receive Date: 20040304
  Receipt Date: 20040212
  Transmission Date: 20041129
  Serious: Yes (Death, Life-Threatening, Hospitalization)
  Sender: FDA-Public Use
  Company Number: PHBS2004IN02062

PATIENT
  Sex: Male

DRUGS (3)
  1. SANDIMMUNE [Suspect]
     Indication: RENAL TRANSPLANT
     Dosage: 50 ML, ONCE/SINGLE
     Route: 048
  2. SANDIMMUNE [Suspect]
     Dosage: 50 ML, ONCE/SINGLE
     Route: 048
  3. SANDIMMUNE [Suspect]
     Dosage: 150 MG, BID
     Route: 048

REACTIONS (6)
  - ACCIDENTAL OVERDOSE [None]
  - DIALYSIS [None]
  - HYPERKALAEMIA [None]
  - LIFE SUPPORT [None]
  - MEDICATION ERROR [None]
  - THERAPEUTIC AGENT TOXICITY [None]
